FAERS Safety Report 4708353-1 (Version None)
Quarter: 2005Q3

REPORT INFORMATION
  Report Type: 
  Country: None (occurrence: None)
  Receive Date: 20050707
  Receipt Date: 20050615
  Transmission Date: 20060218
  Serious: Yes (Life-Threatening)
  Sender: FDA-Public Use
  Company Number: 2005UW09199

PATIENT
  Age: 61 Year
  Sex: Female
  Weight: 71 kg

DRUGS (6)
  1. FOSCAVIR [Suspect]
     Indication: IMMUNODEFICIENCY
     Route: 042
     Dates: start: 20050528, end: 20050613
  2. CYCLOSPORINE [Concomitant]
  3. CELLCEPT [Concomitant]
  4. PREDNISONE TAB [Concomitant]
  5. TRIMETHOPRIM-SULFAMETHOXAZOLE [Concomitant]
  6. GANCICLOVIR [Concomitant]

REACTIONS (2)
  - ANURIA [None]
  - RENAL FAILURE ACUTE [None]
